FAERS Safety Report 24274914 (Version 2)
Quarter: 2024Q4

REPORT INFORMATION
  Report Type: Report from Study
  Country: US (occurrence: US)
  Receive Date: 20240902
  Receipt Date: 20241202
  Transmission Date: 20250114
  Serious: Yes (Hospitalization)
  Sender: PFIZER
  Company Number: US-PFIZER INC-PV202300175389

PATIENT
  Age: 58 Year
  Sex: Female
  Weight: 90.72 kg

DRUGS (15)
  1. BRAFTOVI [Suspect]
     Active Substance: ENCORAFENIB
     Indication: Malignant melanoma
     Dosage: 450 MG, DAILY
     Route: 048
     Dates: start: 20230915
  2. BRAFTOVI [Suspect]
     Active Substance: ENCORAFENIB
     Indication: Metastatic malignant melanoma
     Dosage: 450 MG, 1X/DAY
     Route: 048
     Dates: end: 202406
  3. BRAFTOVI [Suspect]
     Active Substance: ENCORAFENIB
     Dosage: 450 MG, 1X/DAY
     Route: 048
     Dates: end: 202407
  4. BRAFTOVI [Suspect]
     Active Substance: ENCORAFENIB
     Dosage: 450 MG, 1X/DAY
     Route: 048
     Dates: end: 20240820
  5. BRAFTOVI [Suspect]
     Active Substance: ENCORAFENIB
     Dosage: HALF DOSAGE
  6. BRAFTOVI [Suspect]
     Active Substance: ENCORAFENIB
     Dosage: 6 PILLS EACH
  7. BRAFTOVI [Suspect]
     Active Substance: ENCORAFENIB
     Dosage: 75MG; 3 PILLS EACH DOSE
     Dates: start: 20241122
  8. MEKTOVI [Suspect]
     Active Substance: BINIMETINIB
     Indication: Malignant melanoma
     Dosage: 45 MG, 2X/DAY
     Route: 048
     Dates: start: 20230915
  9. MEKTOVI [Suspect]
     Active Substance: BINIMETINIB
     Indication: Metastatic malignant melanoma
     Dosage: 45 MG, 2X/DAY
     Route: 048
     Dates: start: 20230915, end: 202406
  10. MEKTOVI [Suspect]
     Active Substance: BINIMETINIB
     Dosage: 45 MG, 2X/DAY
     Route: 048
     Dates: end: 202407
  11. MEKTOVI [Suspect]
     Active Substance: BINIMETINIB
     Dosage: 45 MG, 2X/DAY
     Route: 048
     Dates: end: 20240820
  12. MEKTOVI [Suspect]
     Active Substance: BINIMETINIB
     Dosage: HALF DOSAGE
  13. MEKTOVI [Suspect]
     Active Substance: BINIMETINIB
     Dosage: 6 PILLS EACH
  14. MEKTOVI [Suspect]
     Active Substance: BINIMETINIB
     Dosage: 15MG; 3 PILLS EACH DOSE
     Dates: start: 20241122
  15. TRULICITY [Concomitant]
     Active Substance: DULAGLUTIDE
     Indication: Diabetes mellitus
     Dosage: UNK, WEEKLY

REACTIONS (12)
  - Hypotension [Recovered/Resolved]
  - Hepatic enzyme increased [Recovered/Resolved]
  - Headache [Recovered/Resolved]
  - Hepatitis [Unknown]
  - Renal disorder [Recovered/Resolved]
  - Condition aggravated [Recovered/Resolved]
  - Arthralgia [Recovered/Resolved]
  - Fatigue [Recovered/Resolved]
  - Pruritus [Recovering/Resolving]
  - Dyspepsia [Recovered/Resolved]
  - Eructation [Recovered/Resolved]
  - Neoplasm progression [Unknown]

NARRATIVE: CASE EVENT DATE: 20230901
